FAERS Safety Report 11533450 (Version 2)
Quarter: 2015Q4

REPORT INFORMATION
  Report Type: Spontaneous
  Country: FR (occurrence: FR)
  Receive Date: 20150921
  Receipt Date: 20151014
  Transmission Date: 20160304
  Serious: Yes (Hospitalization)
  Sender: FDA-Public Use
  Company Number: FR-BAXTER-2015BAX050232

PATIENT
  Age: 40 Year
  Sex: Female

DRUGS (31)
  1. ENDOXAN 500 MG, POUDRE POUR SOLUTIONINJECTABLE [Suspect]
     Active Substance: CYCLOPHOSPHAMIDE
     Indication: SYSTEMIC LUPUS ERYTHEMATOSUS
     Dosage: CYCLE 1 DAY 1
     Route: 042
     Dates: start: 20150626, end: 20150626
  2. ENDOXAN 500 MG, POUDRE POUR SOLUTIONINJECTABLE [Suspect]
     Active Substance: CYCLOPHOSPHAMIDE
     Indication: LUPUS NEPHRITIS
     Dosage: CYCLE 2
     Route: 042
     Dates: start: 20150715, end: 20150715
  3. UROMITEXAN 5 G/50 ML, SOLUTION INJECTABLE POUR PERFUSION EN FLACON [Suspect]
     Active Substance: MESNA
     Indication: PROPHYLAXIS
     Dosage: CYCLE 1 DAY 1
     Route: 042
     Dates: start: 20150626, end: 20150626
  4. UROMITEXAN 600 MG, COMPRIM? PELLICUL? S?CABLE [Suspect]
     Active Substance: MESNA
     Indication: PROPHYLAXIS
     Dosage: CYCLE 1 DAY 1
     Route: 048
     Dates: start: 20150626, end: 20150626
  5. UROMITEXAN 600 MG, COMPRIM? PELLICUL? S?CABLE [Suspect]
     Active Substance: MESNA
     Dosage: CYCLE 4
     Route: 048
     Dates: start: 20150821, end: 20150821
  6. UROMITEXAN 5 G/50 ML, SOLUTION INJECTABLE POUR PERFUSION EN FLACON [Suspect]
     Active Substance: MESNA
     Dosage: CYCLE 2
     Route: 042
     Dates: start: 20150715, end: 20150715
  7. ZOPHREN [Suspect]
     Active Substance: ONDANSETRON
     Indication: PROPHYLAXIS OF NAUSEA AND VOMITING
     Dosage: 8 MG/4ML VIAL INJECTION; CYCLE 1 DAY 1
     Route: 042
     Dates: start: 20150626, end: 20150626
  8. PLAQUENIL [Concomitant]
     Active Substance: HYDROXYCHLOROQUINE SULFATE
     Indication: DRUG THERAPY
     Dosage: IN THE MORNING AND IN THE EVENING
     Route: 065
  9. ENDOXAN 500 MG, POUDRE POUR SOLUTIONINJECTABLE [Suspect]
     Active Substance: CYCLOPHOSPHAMIDE
     Dosage: CYCLE 3
     Route: 042
     Dates: start: 20150731, end: 20150731
  10. UROMITEXAN 5 G/50 ML, SOLUTION INJECTABLE POUR PERFUSION EN FLACON [Suspect]
     Active Substance: MESNA
     Dosage: CYCLE 3
     Route: 042
     Dates: start: 20150731, end: 20150731
  11. POLYIONIQUE FORMULE 1A G5 BAXTER, SOLUTION POUR PERFUSION [Suspect]
     Active Substance: DEXTROSE\POTASSIUM CHLORIDE\SODIUM CHLORIDE
     Dosage: CYCLE 3
     Route: 065
     Dates: start: 20150731, end: 20150731
  12. INEXIUM [Concomitant]
     Active Substance: ESOMEPRAZOLE
     Indication: DRUG THERAPY
     Dosage: IN EVENING
     Route: 065
  13. ENDOXAN 500 MG, POUDRE POUR SOLUTIONINJECTABLE [Suspect]
     Active Substance: CYCLOPHOSPHAMIDE
     Dosage: CYCLE 4
     Route: 042
     Dates: start: 20150821, end: 20150821
  14. ZOPHREN [Suspect]
     Active Substance: ONDANSETRON
     Dosage: 8 MG/4ML VIAL INJECTION; CYCLE 4
     Route: 042
     Dates: start: 20150821, end: 20150821
  15. CORTANCYL [Concomitant]
     Active Substance: PREDNISONE
     Indication: DRUG THERAPY
     Route: 065
  16. ENDOXAN 500 MG, POUDRE POUR SOLUTIONINJECTABLE [Suspect]
     Active Substance: CYCLOPHOSPHAMIDE
     Dosage: FIFTH CYCLE
     Route: 042
  17. POLYIONIQUE FORMULE 1A G5 BAXTER, SOLUTION POUR PERFUSION [Suspect]
     Active Substance: DEXTROSE\POTASSIUM CHLORIDE\SODIUM CHLORIDE
     Dosage: CYCLE 4
     Route: 065
     Dates: start: 20150821, end: 20150821
  18. ENDOXAN 500 MG, POUDRE POUR SOLUTIONINJECTABLE [Suspect]
     Active Substance: CYCLOPHOSPHAMIDE
     Dosage: CYCLE 6
     Route: 042
     Dates: start: 20150918
  19. ZOPHREN [Suspect]
     Active Substance: ONDANSETRON
     Dosage: 8 MG/4ML VIAL INJECTION; CYCLE 3
     Route: 042
     Dates: start: 20150731, end: 20150731
  20. PRIMPERAN [Concomitant]
     Active Substance: METOCLOPRAMIDE HYDROCHLORIDE
     Dosage: FOR 6TH CYCLE
     Route: 065
  21. UROMITEXAN 600 MG, COMPRIM? PELLICUL? S?CABLE [Suspect]
     Active Substance: MESNA
     Dosage: CYCLE 2
     Route: 048
     Dates: start: 20150715, end: 20150715
  22. UROMITEXAN 600 MG, COMPRIM? PELLICUL? S?CABLE [Suspect]
     Active Substance: MESNA
     Dosage: CYCLE 3
     Route: 048
     Dates: start: 20150731, end: 20150731
  23. POLYIONIQUE FORMULE 1A G5 BAXTER, SOLUTION POUR PERFUSION [Suspect]
     Active Substance: DEXTROSE\POTASSIUM CHLORIDE\SODIUM CHLORIDE
     Indication: PRODUCT USED FOR UNKNOWN INDICATION
     Dosage: CYCLE 1 DAY 1
     Route: 065
     Dates: start: 20150626, end: 20150626
  24. POLYIONIQUE FORMULE 1A G5 BAXTER, SOLUTION POUR PERFUSION [Suspect]
     Active Substance: DEXTROSE\POTASSIUM CHLORIDE\SODIUM CHLORIDE
     Dosage: CYCLE 2
     Route: 065
     Dates: start: 20150715, end: 20150715
  25. BACTRIM [Concomitant]
     Active Substance: SULFAMETHOXAZOLE\TRIMETHOPRIM
     Indication: DRUG THERAPY
     Dosage: IN THE MORNING
     Route: 065
  26. COLD CREAM [Concomitant]
     Active Substance: COLD CREAM
     Indication: DRUG THERAPY
     Dosage: 1 APPLICATION IN MORNING
     Route: 065
  27. UROMITEXAN 5 G/50 ML, SOLUTION INJECTABLE POUR PERFUSION EN FLACON [Suspect]
     Active Substance: MESNA
     Dosage: CYCLE 4
     Route: 042
     Dates: start: 20150821, end: 20150821
  28. ZOPHREN [Suspect]
     Active Substance: ONDANSETRON
     Dosage: 8 MG/4ML VIAL INJECTION; CYCLE 2
     Route: 042
     Dates: start: 20150715, end: 20150715
  29. CALCIUM VITAMIN D3 [Concomitant]
     Indication: DRUG THERAPY
     Dosage: AT NOON
     Route: 065
  30. DECAPEPTYL [Concomitant]
     Active Substance: TRIPTORELIN ACETATE
     Indication: PRODUCT USED FOR UNKNOWN INDICATION
     Route: 065
  31. PRIMPERAN [Concomitant]
     Active Substance: METOCLOPRAMIDE HYDROCHLORIDE
     Indication: PREMEDICATION
     Dosage: FOR 5TH CYCLE
     Route: 065

REACTIONS (11)
  - Abdominal pain [Recovered/Resolved]
  - Eyelid oedema [Recovered/Resolved]
  - Dysphagia [Unknown]
  - Vomiting [Unknown]
  - Erythema [Unknown]
  - Visual acuity reduced [Unknown]
  - Face oedema [Unknown]
  - Diarrhoea [Unknown]
  - Arthralgia [Unknown]
  - Sepsis [Unknown]
  - Pyrexia [Unknown]

NARRATIVE: CASE EVENT DATE: 20150821
